FAERS Safety Report 9840694 (Version 1)
Quarter: 2014Q1

REPORT INFORMATION
  Report Type: Spontaneous
  Country: AR (occurrence: AR)
  Receive Date: 20140124
  Receipt Date: 20140124
  Transmission Date: 20141002
  Serious: Yes (Other)
  Sender: FDA-Public Use
  Company Number: PHHY2014AR007772

PATIENT
  Sex: Female

DRUGS (1)
  1. SANDOSTATIN LAR [Suspect]
     Indication: PITUITARY TUMOUR
     Dosage: 30 MG, EVERY 28 DAYS
     Route: 065
     Dates: start: 2006

REACTIONS (6)
  - Thyroid neoplasm [Recovering/Resolving]
  - Breast neoplasm [Unknown]
  - Second primary malignancy [Unknown]
  - Hip fracture [Unknown]
  - Oedema mouth [Unknown]
  - Food poisoning [Unknown]
